FAERS Safety Report 17605385 (Version 1)
Quarter: 2020Q1

REPORT INFORMATION
  Report Type: Spontaneous
  Country: US (occurrence: US)
  Receive Date: 20200331
  Receipt Date: 20200331
  Transmission Date: 20200409
  Serious: Yes (Hospitalization)
  Sender: FDA-Public Use
  Company Number: None

PATIENT
  Age: 65 Year
  Sex: Female

DRUGS (13)
  1. EZETIMBE [Concomitant]
     Active Substance: EZETIMIBE
  2. PROBIOTIC [Concomitant]
     Active Substance: PROBIOTICS NOS
  3. CARVEDILOL. [Concomitant]
     Active Substance: CARVEDILOL
  4. SPIRONOLACT [Concomitant]
     Active Substance: SPIRONOLACTONE
  5. PRALUENT [Suspect]
     Active Substance: ALIROCUMAB
     Indication: PRODUCT USED FOR UNKNOWN INDICATION
     Dosage: ?          OTHER FREQUENCY:EVERY 2 WEEKS;?
     Route: 058
     Dates: start: 20200227
  6. CLOPIDOGREL [Concomitant]
     Active Substance: CLOPIDOGREL BISULFATE
  7. ALPRAZOLAM. [Concomitant]
     Active Substance: ALPRAZOLAM
  8. SYMBICORT [Concomitant]
     Active Substance: BUDESONIDE\FORMOTEROL FUMARATE DIHYDRATE
  9. AMLODIPINE [Concomitant]
     Active Substance: AMLODIPINE BESYLATE
  10. ATROVENT [Concomitant]
     Active Substance: IPRATROPIUM BROMIDE
  11. WARFARIN [Concomitant]
     Active Substance: WARFARIN
  12. AMBRISENTAN [Suspect]
     Active Substance: AMBRISENTAN
     Indication: PULMONARY ARTERIAL HYPERTENSION
     Route: 048
     Dates: start: 20200311
  13. FLUOXETINE [Concomitant]
     Active Substance: FLUOXETINE HYDROCHLORIDE

REACTIONS (1)
  - Internal haemorrhage [None]

NARRATIVE: CASE EVENT DATE: 20200326
